FAERS Safety Report 15403977 (Version 1)
Quarter: 2018Q3

REPORT INFORMATION
  Report Type: Spontaneous
  Country: US (occurrence: US)
  Receive Date: 20180919
  Receipt Date: 20180919
  Transmission Date: 20181010
  Serious: No
  Sender: FDA-Public Use
  Company Number: US-AVADEL SPECIALTY PHARMACEUTICALS, LLC-2018AVA00220

PATIENT
  Sex: Male

DRUGS (1)
  1. NOCTIVA [Suspect]
     Active Substance: DESMOPRESSIN ACETATE
     Dosage: 1.66 ?G, 1X/DAY EITHER LEFT OR RIGHT NOSTRIL
     Route: 045
     Dates: start: 2018

REACTIONS (1)
  - Paranasal sinus discomfort [Unknown]

NARRATIVE: CASE EVENT DATE: 2018
